FAERS Safety Report 6771070-0 (Version None)
Quarter: 2010Q2

REPORT INFORMATION
  Report Type: 
  Country: None (occurrence: None)
  Receive Date: 20100616
  Receipt Date: 20100602
  Transmission Date: 20101027
  Serious: Yes (Hospitalization)
  Sender: FDA-Public Use
  Company Number: GB-RANBAXY-2010RR-34483

PATIENT
  Age: 56 Year
  Sex: Male

DRUGS (3)
  1. FLECAINIDE ACETATE [Suspect]
     Indication: ATRIAL FIBRILLATION
     Route: 048
  2. FLECAINIDE ACETATE [Concomitant]
     Dosage: 100 MG, BID
  3. ALCOHOL [Concomitant]

REACTIONS (2)
  - ATRIAL FLUTTER [None]
  - TACHYCARDIA [None]
